FAERS Safety Report 9322183 (Version 1)
Quarter: 2013Q2

REPORT INFORMATION
  Report Type: Report from Study
  Country: US (occurrence: US)
  Receive Date: 20130531
  Receipt Date: 20130531
  Transmission Date: 20140414
  Serious: Yes (Other)
  Sender: FDA-Public Use
  Company Number: US-ABBOTT-13P-163-1066622-00

PATIENT
  Age: 75 Year
  Sex: Female

DRUGS (26)
  1. HUMIRA [Suspect]
     Indication: RHEUMATOID ARTHRITIS
     Dates: start: 201009
  2. HUMIRA [Suspect]
     Dates: start: 201304
  3. BISOPROLOL HCT [Concomitant]
     Indication: FLUID RETENTION
     Dosage: 2.5-6.25 MG DAILY
  4. BISOPROLOL HCT [Concomitant]
     Indication: HYPERTENSION
  5. ZOCOR [Concomitant]
     Indication: BLOOD CHOLESTEROL INCREASED
  6. NABUMETONE [Concomitant]
     Indication: RHEUMATOID ARTHRITIS
  7. FLEXERIL [Concomitant]
     Indication: MUSCLE SPASMS
  8. FOLIC ACID [Concomitant]
     Indication: PRODUCT USED FOR UNKNOWN INDICATION
  9. ULTRAM [Concomitant]
     Indication: PAIN
  10. METHOTREXATE [Concomitant]
     Indication: PRODUCT USED FOR UNKNOWN INDICATION
  11. FOSAMAX [Concomitant]
     Indication: OSTEOPOROSIS
  12. PREDNISONE [Concomitant]
     Indication: RHEUMATOID ARTHRITIS
  13. FUROSEMIDE [Concomitant]
     Indication: FLUID RETENTION
  14. KLOR-CON [Concomitant]
     Indication: ELECTROLYTE SUBSTITUTION THERAPY
  15. ASA [Concomitant]
     Indication: ANTICOAGULANT THERAPY
  16. VITAMIN B COMP [Concomitant]
     Indication: PRODUCT USED FOR UNKNOWN INDICATION
  17. VITAMIN C [Concomitant]
     Indication: PRODUCT USED FOR UNKNOWN INDICATION
  18. VIT 3 [Concomitant]
     Indication: PRODUCT USED FOR UNKNOWN INDICATION
  19. TUMS [Concomitant]
     Indication: GASTROOESOPHAGEAL REFLUX DISEASE
  20. TUMS [Concomitant]
     Indication: BLOOD CALCIUM
  21. CLARITIN [Concomitant]
     Indication: SEASONAL ALLERGY
  22. ZANTAC [Concomitant]
     Indication: GASTROOESOPHAGEAL REFLUX DISEASE
  23. COLACE [Concomitant]
     Indication: CONSTIPATION
  24. PRIMROSE OIL [Concomitant]
     Indication: HOT FLUSH
  25. FIBER CHOICE [Concomitant]
     Indication: CONSTIPATION
  26. TRAMADOL [Concomitant]
     Indication: ARTHRALGIA

REACTIONS (5)
  - Medical device complication [Recovered/Resolved]
  - Upper limb fracture [Recovered/Resolved]
  - Fall [Recovered/Resolved]
  - Device malfunction [Not Recovered/Not Resolved]
  - Incorrect dose administered [Not Recovered/Not Resolved]
